FAERS Safety Report 6961235-7 (Version None)
Quarter: 2010Q3

REPORT INFORMATION
  Report Type: 
  Country: None (occurrence: None)
  Receive Date: 20100901
  Receipt Date: 20100825
  Transmission Date: 20110219
  Serious: Yes (Hospitalization)
  Sender: FDA-Public Use
  Company Number: A0764354A

PATIENT
  Age: 62 Year
  Sex: Male

DRUGS (4)
  1. AVANDIA [Suspect]
     Dosage: 8MG PER DAY
     Route: 048
     Dates: start: 20030101, end: 20070703
  2. BYETTA [Concomitant]
  3. NITROGLYCERIN [Concomitant]
     Dates: start: 20010101, end: 20080101
  4. CYMBALTA [Concomitant]

REACTIONS (2)
  - ARTERIAL DISORDER [None]
  - CARDIAC DISORDER [None]
